FAERS Safety Report 15384122 (Version 1)
Quarter: 2018Q3

REPORT INFORMATION
  Report Type: Report from Study
  Country: None (occurrence: US)
  Receive Date: 20180914
  Receipt Date: 20180914
  Transmission Date: 20181010
  Serious: Yes (Other)
  Sender: FDA-Public Use
  Company Number: US-ABBVIE-18K-163-2380517-00

PATIENT
  Age: 55 Year
  Sex: Male

DRUGS (2)
  1. HUMIRA [Suspect]
     Active Substance: ADALIMUMAB
     Indication: PSORIASIS
     Dosage: DAY 1
     Route: 058
     Dates: start: 20180530, end: 20180530
  2. HUMIRA [Suspect]
     Active Substance: ADALIMUMAB
     Route: 058
     Dates: start: 20180627

REACTIONS (17)
  - Arthritis [Unknown]
  - Hyperhidrosis [Unknown]
  - Erythema [Unknown]
  - Staphylococcal infection [Unknown]
  - Skin exfoliation [Not Recovered/Not Resolved]
  - Sensitivity to weather change [Unknown]
  - Sensation of foreign body [Recovered/Resolved]
  - Psoriasis [Not Recovered/Not Resolved]
  - Hypersensitivity [Unknown]
  - Hip arthroplasty [Unknown]
  - Lymphadenopathy [Recovered/Resolved]
  - Skin irritation [Not Recovered/Not Resolved]
  - Wound [Unknown]
  - Drug ineffective [Unknown]
  - Staphylococcal infection [Recovered/Resolved]
  - Arthropathy [Not Recovered/Not Resolved]
  - Psoriasis [Recovering/Resolving]

NARRATIVE: CASE EVENT DATE: 2018
